FAERS Safety Report 21411964 (Version 3)
Quarter: 2022Q4

REPORT INFORMATION
  Report Type: Spontaneous
  Country: RU (occurrence: RU)
  Receive Date: 20221005
  Receipt Date: 20221028
  Transmission Date: 20230113
  Serious: Yes (Hospitalization, Other)
  Sender: FDA-Public Use
  Company Number: RU-AMERICAN REGENT INC-2022002896

PATIENT
  Sex: Female
  Weight: 3.14 kg

DRUGS (4)
  1. VENOFER [Suspect]
     Active Substance: IRON SUCROSE
     Indication: Product used for unknown indication
     Dosage: UNK
     Route: 064
  2. FERINJECT [Suspect]
     Active Substance: FERRIC CARBOXYMALTOSE
     Indication: Product used for unknown indication
     Dosage: UNK
     Route: 064
  3. IRON POLYMALTOSE [Suspect]
     Active Substance: IRON POLYMALTOSE
     Indication: Product used for unknown indication
     Dosage: UNK
     Route: 064
  4. IRON POLYMALTOSE [Suspect]
     Active Substance: IRON POLYMALTOSE
     Indication: Product used for unknown indication
     Dosage: UNK
     Route: 064

REACTIONS (8)
  - Generalised tonic-clonic seizure [Unknown]
  - Perinatal stroke [Unknown]
  - Haemorrhage intracranial [Unknown]
  - Subdural haematoma [Unknown]
  - Retinal haemorrhage [Unknown]
  - Epilepsy [Unknown]
  - Foetal exposure during pregnancy [Unknown]
  - Hypotension [Unknown]
